FAERS Safety Report 20461688 (Version 2)
Quarter: 2022Q2

REPORT INFORMATION
  Report Type: Spontaneous
  Country: US (occurrence: US)
  Receive Date: 20220211
  Receipt Date: 20220404
  Transmission Date: 20220721
  Serious: No
  Sender: FDA-Public Use
  Company Number: US-BIOGEN-2022BI01095259

PATIENT
  Age: 53 Year
  Sex: Female

DRUGS (1)
  1. TECFIDERA [Suspect]
     Active Substance: DIMETHYL FUMARATE
     Indication: Product used for unknown indication
     Route: 048
     Dates: start: 201801

REACTIONS (8)
  - Dizziness [Unknown]
  - Micturition urgency [Unknown]
  - Hernia [Unknown]
  - Choking [Unknown]
  - Dry skin [Unknown]
  - Nausea [Unknown]
  - Flushing [Unknown]
  - Hot flush [Unknown]

NARRATIVE: CASE EVENT DATE: 20220204
